FAERS Safety Report 8920728 (Version 1)
Quarter: 2012Q4

REPORT INFORMATION
  Report Type: 
  Country: ID (occurrence: ID)
  Receive Date: 20121122
  Receipt Date: 20121122
  Transmission Date: 20130627
  Serious: Yes (Death)
  Sender: FDA-Public Use
  Company Number: ID-ROCHE-1159201

PATIENT

DRUGS (1)
  1. ACTEMRA [Suspect]
     Indication: GASTROINTESTINAL AMYLOIDOSIS
     Route: 042
     Dates: start: 20121113, end: 20121113

REACTIONS (1)
  - Megacolon [Fatal]
